FAERS Safety Report 19081615 (Version 2)
Quarter: 2021Q2

REPORT INFORMATION
  Report Type: Spontaneous
  Country: US (occurrence: US)
  Receive Date: 20210331
  Receipt Date: 20210401
  Transmission Date: 20210717
  Serious: Yes (Other)
  Sender: FDA-Public Use
  Company Number: US-JNJFOC-20210351099

PATIENT
  Age: 66 Year
  Sex: Female

DRUGS (5)
  1. RISPERDAL [Suspect]
     Active Substance: RISPERIDONE
     Indication: NEOPLASM MALIGNANT
     Route: 065
  2. ONDANSETRON [Interacting]
     Active Substance: ONDANSETRON
  3. MOXIFLOXACIN. [Interacting]
     Active Substance: MOXIFLOXACIN
  4. VORICONAZOLE. [Interacting]
     Active Substance: VORICONAZOLE
  5. PROMETHAZINE [Suspect]
     Active Substance: PROMETHAZINE HYDROCHLORIDE

REACTIONS (2)
  - Drug interaction [Unknown]
  - Electrocardiogram QT prolonged [Unknown]
